FAERS Safety Report 4766610-7 (Version None)
Quarter: 2005Q3

REPORT INFORMATION
  Report Type: 
  Country: None (occurrence: None)
  Receive Date: 20050912
  Receipt Date: 20050828
  Transmission Date: 20060218
  Serious: Yes (Other)
  Sender: FDA-Public Use
  Company Number: CHPA2005US02420

PATIENT
  Age: 72 Year
  Sex: Female
  Weight: 82.5 kg

DRUGS (3)
  1. OSCO STEP 2 14MG (NCH) (NICOTINE) TRANS-THERAPEUTIC-SYSTEM [Suspect]
     Indication: SMOKING CESSATION THERAPY
     Dosage: 14 MG, ONCE/SINGLE, TRANSDERMAL
     Route: 062
     Dates: start: 20050723, end: 20050723
  2. OXYGEN (OXYGEN) [Concomitant]
  3. DRUG THERAPY NOS 9DRUG THERAPY NOS) [Concomitant]

REACTIONS (5)
  - HEART RATE INCREASED [None]
  - HYPERHIDROSIS [None]
  - NAUSEA [None]
  - TREMOR [None]
  - UNEVALUABLE EVENT [None]
